FAERS Safety Report 8612973 (Version 2)
Quarter: 2012Q4

REPORT INFORMATION
  Report Type: 
  Country: US (occurrence: US)
  Receive Date: 20120613
  Receipt Date: 20120920
  Transmission Date: 20130627
  Serious: No
  Sender: FDA-Public Use
  Company Number: US-BAYER-2012-056266

PATIENT
  Sex: Female

DRUGS (1)
  1. MIRENA [Suspect]
     Indication: MENORRHAGIA
     Dosage: 20 mcg/24hr, CONT
     Route: 015
     Dates: start: 201205, end: 20120606

REACTIONS (10)
  - Acne [Recovered/Resolved]
  - Mood swings [Recovered/Resolved]
  - Alopecia [None]
  - Asthenia [Recovered/Resolved]
  - Hot flush [Recovered/Resolved]
  - Abdominal distension [Recovering/Resolving]
  - Disturbance in attention [Recovered/Resolved]
  - Feeling abnormal [Recovered/Resolved]
  - Fatigue [Recovered/Resolved]
  - Weight increased [Recovered/Resolved]
